FAERS Safety Report 5898548-6 (Version None)
Quarter: 2008Q3

REPORT INFORMATION
  Report Type: 
  Country: None (occurrence: None)
  Receive Date: 20080925
  Receipt Date: 20080415
  Transmission Date: 20090109
  Serious: Yes (Hospitalization)
  Sender: FDA-Public Use
  Company Number: A0703647A

PATIENT
  Age: 41 Year
  Sex: Female
  Weight: 67.3 kg

DRUGS (5)
  1. WELLBUTRIN XL [Suspect]
     Indication: DEPRESSION
     Dosage: 150MG PER DAY
     Route: 048
     Dates: start: 20010101
  2. OMEGA 3 FATTY ACID [Concomitant]
  3. VITAMIN TAB [Concomitant]
  4. PITOCIN [Concomitant]
  5. MAGNESIUM SULFATE [Concomitant]

REACTIONS (9)
  - AMNESIA [None]
  - AURA [None]
  - DRUG EXPOSURE DURING PREGNANCY [None]
  - GRAND MAL CONVULSION [None]
  - INCONTINENCE [None]
  - NORMAL NEWBORN [None]
  - POSTICTAL STATE [None]
  - TONGUE BITING [None]
  - TREMOR [None]
